FAERS Safety Report 7798852-0 (Version None)
Quarter: 2011Q4

REPORT INFORMATION
  Report Type: 
  Country: None (occurrence: None)
  Receive Date: 20111006
  Receipt Date: 20110928
  Transmission Date: 20120403
  Serious: Yes (Hospitalization)
  Sender: FDA-Public Use
  Company Number: FR-JNJFOC-20111000293

PATIENT
  Sex: Male

DRUGS (11)
  1. NITROGLYCERIN [Concomitant]
     Route: 065
  2. MONICOR [Concomitant]
     Route: 065
  3. LEXOMIL [Concomitant]
     Route: 065
  4. ZOPICLONE [Concomitant]
     Route: 065
  5. OMEPRAZOLE [Concomitant]
     Route: 065
  6. CLOPIDOGREL [Concomitant]
     Route: 065
  7. AMIODARONE HCL [Concomitant]
     Route: 065
  8. CLONAZEPAM [Concomitant]
     Route: 065
  9. DURAGESIC-100 [Suspect]
     Indication: PRODUCT USED FOR UNKNOWN INDICATION
     Route: 062
     Dates: end: 20110808
  10. DIGOXIN [Concomitant]
     Route: 065
  11. PAROXETINE HCL [Concomitant]
     Route: 065

REACTIONS (2)
  - CONFUSIONAL STATE [None]
  - FALL [None]
